FAERS Safety Report 21339928 (Version 1)
Quarter: 2022Q3

REPORT INFORMATION
  Report Type: Spontaneous
  Country: US (occurrence: US)
  Receive Date: 20220915
  Receipt Date: 20220915
  Transmission Date: 20221026
  Serious: Yes (Other)
  Sender: FDA-Public Use
  Company Number: US-JNJFOC-20220914243

PATIENT
  Age: 60 Year
  Sex: Female

DRUGS (7)
  1. STELARA [Suspect]
     Active Substance: USTEKINUMAB
     Indication: Crohn^s disease
     Route: 058
     Dates: start: 20211231
  2. STELARA [Suspect]
     Active Substance: USTEKINUMAB
  3. SPIRONOLACTONE [Concomitant]
     Active Substance: SPIRONOLACTONE
  4. PANTOPRAZOLE [Concomitant]
     Active Substance: PANTOPRAZOLE
  5. ACETAZOLAMIDE [Concomitant]
     Active Substance: ACETAZOLAMIDE
  6. TRIAMCINOLONE [Concomitant]
     Active Substance: TRIAMCINOLONE
  7. PHENTERMINE [Concomitant]
     Active Substance: PHENTERMINE

REACTIONS (6)
  - Crohn^s disease [Unknown]
  - Headache [Unknown]
  - Arthralgia [Unknown]
  - Rash [Unknown]
  - Fungal infection [Unknown]
  - Alopecia [Unknown]
